FAERS Safety Report 6043275-8 (Version None)
Quarter: 2009Q1

REPORT INFORMATION
  Report Type: 
  Country: None (occurrence: None)
  Receive Date: 20090119
  Receipt Date: 20090113
  Transmission Date: 20090719
  Serious: Yes (Other)
  Sender: FDA-Public Use
  Company Number: US-ALLERGAN-0900406US

PATIENT
  Sex: Female

DRUGS (4)
  1. BOTOX [Suspect]
     Indication: MUSCLE SPASTICITY
     Dosage: UNK, SINGLE
     Route: 030
     Dates: start: 20080716, end: 20080716
  2. BOTOX [Suspect]
     Indication: TORTICOLLIS
     Dosage: 200 UNITS, SINGLE
     Route: 030
     Dates: start: 20081015, end: 20081015
  3. ALEVE [Concomitant]
     Dosage: 4 TABS PRN
  4. FLUOXETINE [Concomitant]
     Dosage: 20 MG, QAM
     Route: 048

REACTIONS (5)
  - DYSPHAGIA [None]
  - INJECTION SITE PAIN [None]
  - LOCAL SWELLING [None]
  - MUSCLE SPASMS [None]
  - MUSCLE TIGHTNESS [None]
